FAERS Safety Report 5447473-3 (Version None)
Quarter: 2007Q3

REPORT INFORMATION
  Report Type: 
  Country: None (occurrence: None)
  Receive Date: 20070910
  Receipt Date: 20070831
  Transmission Date: 20080115
  Serious: Yes (Hospitalization, Other)
  Sender: FDA-Public Use
  Company Number: A0658960A

PATIENT
  Age: 76 Year
  Sex: Female
  Weight: 75.5 kg

DRUGS (17)
  1. ARIXTRA [Suspect]
     Indication: ANTICOAGULANT THERAPY
     Dosage: 7.5MG PER DAY
     Route: 058
     Dates: start: 20070526, end: 20070602
  2. AMIODARONE [Concomitant]
     Dosage: 200MG PER DAY
  3. ASPIRIN [Concomitant]
     Dosage: 81MG PER DAY
  4. COMBIVENT [Concomitant]
     Dosage: 2PUFF FOUR TIMES PER DAY
     Route: 055
  5. MAG-OX [Concomitant]
     Dosage: 400MG TWICE PER DAY
  6. MULTI-VITAMIN [Concomitant]
     Dosage: 1TAB PER DAY
  7. PREVACID [Concomitant]
     Dosage: 30MG PER DAY
  8. LYRICA [Concomitant]
     Dosage: 75MG TWICE PER DAY
  9. ACTONEL [Concomitant]
     Dosage: 35MG WEEKLY
  10. ZOCOR [Concomitant]
     Dosage: 20MG AT NIGHT
  11. COREG [Concomitant]
     Dosage: 12.5MG TWICE PER DAY
  12. ZYLOPRIM [Concomitant]
     Dosage: 100MG PER DAY
  13. COLACE [Concomitant]
     Dosage: 100MG PER DAY
  14. INDOCIN [Concomitant]
     Dosage: 50MG THREE TIMES PER DAY
  15. FUROSEMIDE [Concomitant]
     Dosage: 40MG THREE TIMES PER DAY
     Route: 042
  16. RESTORIL [Concomitant]
     Dosage: 15MG AS REQUIRED
  17. MYLICON [Concomitant]
     Dosage: 80MG AS REQUIRED

REACTIONS (14)
  - ANAEMIA [None]
  - BLISTER [None]
  - BLOOD CULTURE POSITIVE [None]
  - CATHETER RELATED INFECTION [None]
  - DYSURIA [None]
  - ENTEROCOCCAL INFECTION [None]
  - HAEMATOMA [None]
  - HAEMOGLOBIN DECREASED [None]
  - IMPAIRED HEALING [None]
  - KLEBSIELLA INFECTION [None]
  - PROTEUS INFECTION [None]
  - SKIN GRAFT [None]
  - URINARY TRACT INFECTION [None]
  - WOUND SECRETION [None]
